FAERS Safety Report 7444467-3 (Version None)
Quarter: 2011Q2

REPORT INFORMATION
  Report Type: 
  Country: None (occurrence: None)
  Receive Date: 20110429
  Receipt Date: 20110418
  Transmission Date: 20111010
  Serious: Yes (Other)
  Sender: FDA-Public Use
  Company Number: CA-JNJFOC-20110409318

PATIENT
  Sex: Female

DRUGS (2)
  1. SIMPONI [Suspect]
     Indication: RHEUMATOID ARTHRITIS
     Route: 058
  2. NAPROSYN [Concomitant]
     Dosage: AS NEEDED

REACTIONS (7)
  - NASAL CONGESTION [None]
  - DIARRHOEA [None]
  - INJECTION SITE HAEMATOMA [None]
  - PARAESTHESIA [None]
  - OESOPHAGITIS [None]
  - HAEMOPTYSIS [None]
  - HYPOAESTHESIA [None]
